FAERS Safety Report 9855028 (Version 1)
Quarter: 2013Q4

REPORT INFORMATION
  Report Type: Spontaneous
  Country: US (occurrence: None)
  Receive Date: 20131226
  Receipt Date: 20131226
  Transmission Date: 20140711
  Serious: Yes (Other)
  Sender: FDA-Public Use
  Company Number: PHEH2013US015813

PATIENT
  Age: 85 Year
  Sex: Female

DRUGS (6)
  1. AFINITOR (RAD) UNKNOWN [Suspect]
     Route: 048
  2. EXEMESTANE (EXEMESTANE) [Concomitant]
  3. LEVOTHYROXINE (LEVOHYROXINE) [Concomitant]
  4. LIPITOR (ATORVASTATIN CALCIUM) [Concomitant]
  5. LYRICA (PREGABALIN) ONGOING [Concomitant]
  6. ASPIRIN (ACETYLSALIC ACID) [Concomitant]

REACTIONS (9)
  - Oedema mouth [None]
  - Swollen tongue [None]
  - Lip swelling [None]
  - Photophobia [None]
  - Oral mucosal blistering [None]
  - Oral mucosal erythema [None]
  - Speech disorder [None]
  - Oral pain [None]
  - Stomatitis [None]
